FAERS Safety Report 14713136 (Version 2)
Quarter: 2018Q2

REPORT INFORMATION
  Report Type: Spontaneous
  Country: PR (occurrence: PR)
  Receive Date: 20180404
  Receipt Date: 20180418
  Transmission Date: 20180711
  Serious: Yes (Hospitalization, Other)
  Sender: FDA-Public Use
  Company Number: PR-PFIZER INC-2018135941

PATIENT
  Age: 74 Year
  Sex: Male
  Weight: 84.35 kg

DRUGS (1)
  1. SUTENT [Suspect]
     Active Substance: SUNITINIB MALATE
     Indication: RENAL CANCER
     Dosage: 50 MG, CYCLIC (DAILY FOR 28 DAYS, 2 WEEKS REST)
     Route: 048
     Dates: start: 20180322

REACTIONS (4)
  - Fatigue [Unknown]
  - Hypertension [Unknown]
  - Pancreatitis [Unknown]
  - Jaundice [Unknown]

NARRATIVE: CASE EVENT DATE: 20180409
